FAERS Safety Report 9324941 (Version 1)
Quarter: 2013Q2

REPORT INFORMATION
  Report Type: Spontaneous
  Country: GB (occurrence: GB)
  Receive Date: 20130603
  Receipt Date: 20130603
  Transmission Date: 20140414
  Serious: Yes (Hospitalization)
  Sender: FDA-Public Use
  Company Number: GB-TEVA-408873ISR

PATIENT
  Age: 93 Year
  Sex: Female
  Weight: 60 kg

DRUGS (8)
  1. TRIMETHOPRIM [Suspect]
     Indication: URINARY TRACT INFECTION
     Route: 048
     Dates: start: 20130423, end: 20130426
  2. CLOPIDOGREL [Concomitant]
  3. DOXAZOSIN [Concomitant]
  4. INDAPAMIDE [Concomitant]
  5. LEVOTHYROXINE [Concomitant]
  6. NIFEDIPINE [Concomitant]
  7. VALSARTAN [Concomitant]
  8. CLARITHROMYCIN [Concomitant]
     Dates: start: 20130311

REACTIONS (1)
  - Muscular weakness [Not Recovered/Not Resolved]
